FAERS Safety Report 12724067 (Version 1)
Quarter: 2016Q3

REPORT INFORMATION
  Report Type: Spontaneous
  Country: US (occurrence: US)
  Receive Date: 20160908
  Receipt Date: 20160908
  Transmission Date: 20161109
  Serious: Yes (Other)
  Sender: FDA-Public Use
  Company Number: US-PFIZER INC-2016413482

PATIENT
  Age: 49 Year
  Sex: Male
  Weight: 88.45 kg

DRUGS (1)
  1. PREPARATION H COOLING GEL [Suspect]
     Active Substance: PHENYLEPHRINE HYDROCHLORIDE\WITCH HAZEL
     Indication: PAIN
     Dosage: QUATER OF GRAM TO HALF A GRAM AFTER USE THE RESTROOM. APPLIED EXTERNALLY TO RECTAL AREA.
     Dates: start: 201608

REACTIONS (4)
  - Feeling hot [Unknown]
  - Rectal haemorrhage [Not Recovered/Not Resolved]
  - Intentional product misuse [Unknown]
  - Condition aggravated [Not Recovered/Not Resolved]

NARRATIVE: CASE EVENT DATE: 201608
